FAERS Safety Report 7388206-3 (Version None)
Quarter: 2011Q1

REPORT INFORMATION
  Report Type: 
  Country: None (occurrence: None)
  Receive Date: 20110329
  Receipt Date: 20110329
  Transmission Date: 20110831
  Serious: Yes (Other)
  Sender: FDA-Public Use
  Company Number: None

PATIENT
  Sex: Female
  Weight: 81.6475 kg

DRUGS (1)
  1. LIPITOR [Suspect]
     Indication: CHOLESTEROSIS
     Dosage: 10 1 X DAY ORAL (2 6MO PERIODS)
     Dates: start: 20070101, end: 20080101

REACTIONS (5)
  - IMPAIRED DRIVING ABILITY [None]
  - FATIGUE [None]
  - MENTAL DISORDER [None]
  - MEMORY IMPAIRMENT [None]
  - DEPRESSED LEVEL OF CONSCIOUSNESS [None]
